FAERS Safety Report 8823694 (Version 4)
Quarter: 2018Q3

REPORT INFORMATION
  Report Type: Report from Study
  Country: FR (occurrence: FR)
  Receive Date: 20121003
  Receipt Date: 20180911
  Transmission Date: 20181010
  Serious: Yes (Other)
  Sender: FDA-Public Use
  Company Number: FR-PFIZER INC-2012238466

PATIENT
  Age: 67 Year
  Sex: Female
  Weight: 55 kg

DRUGS (17)
  1. FLUOROURACILE PFIZER [Suspect]
     Active Substance: FLUOROURACIL
     Dosage: 650 MG, CYCLIC
     Dates: start: 20120814
  2. FLUOROURACILE PFIZER [Suspect]
     Active Substance: FLUOROURACIL
     Dosage: 3750 MG, CYCLIC
     Dates: start: 20120814
  3. ERBITUX [Suspect]
     Active Substance: CETUXIMAB
     Indication: RECTAL CANCER METASTATIC
     Dosage: UNK
     Route: 042
     Dates: start: 20120412
  4. FLUOROURACILE PFIZER [Suspect]
     Active Substance: FLUOROURACIL
     Indication: RECTAL CANCER METASTATIC
     Dosage: UNK
     Route: 042
     Dates: start: 20120412
  5. ERBITUX [Suspect]
     Active Substance: CETUXIMAB
     Dosage: 390 MG, CYCLIC
     Route: 042
     Dates: start: 20120822
  6. IRINOTECAN HCL [Suspect]
     Active Substance: IRINOTECAN HYDROCHLORIDE
     Indication: RECTAL CANCER METASTATIC
     Dosage: UNK
     Route: 042
     Dates: start: 20120412
  7. IRINOTECAN HCL [Suspect]
     Active Substance: IRINOTECAN HYDROCHLORIDE
     Dosage: 280 MG, CYCLIC
     Route: 042
     Dates: start: 20120801, end: 20120829
  8. ERBITUX [Suspect]
     Active Substance: CETUXIMAB
     Dosage: 390 MG, CYCLIC
     Route: 042
     Dates: start: 20120808
  9. FLUOROURACILE PFIZER [Suspect]
     Active Substance: FLUOROURACIL
     Dosage: 650 MG, CYCLIC
     Route: 042
     Dates: start: 20120822, end: 20120829
  10. FLUOROURACILE PFIZER [Suspect]
     Active Substance: FLUOROURACIL
     Dosage: 3750 MG, CYCLIC
     Route: 042
     Dates: start: 20120801, end: 20120829
  11. ERBITUX [Suspect]
     Active Substance: CETUXIMAB
     Dosage: 315 MG, CYCLIC
     Route: 042
     Dates: start: 20120905
  12. FOLINIC ACID [Suspect]
     Active Substance: LEUCOVORIN
     Indication: RECTAL CANCER METASTATIC
     Dosage: UNK
     Dates: start: 20120412
  13. ERBITUX [Suspect]
     Active Substance: CETUXIMAB
     Dosage: 390 MG, CYCLIC
     Dates: start: 20120814
  14. IRINOTECAN HCL [Suspect]
     Active Substance: IRINOTECAN HYDROCHLORIDE
     Dosage: 280 MG, CYCLICUNK
     Dates: start: 20120814
  15. ERBITUX [Suspect]
     Active Substance: CETUXIMAB
     Dosage: 390 MG, CYCLIC
     Route: 042
     Dates: start: 20120801
  16. FLUOROURACILE PFIZER [Suspect]
     Active Substance: FLUOROURACIL
     Dosage: 600 MG, CYCLIC
     Route: 042
     Dates: start: 20120801
  17. TOLEXINE [Concomitant]
     Active Substance: DOXYCYCLINE
     Indication: DERMATITIS ACNEIFORM
     Dosage: UNK
     Dates: end: 201207

REACTIONS (1)
  - Photosensitivity reaction [Recovering/Resolving]

NARRATIVE: CASE EVENT DATE: 20120719
